FAERS Safety Report 5976201-8 (Version None)
Quarter: 2008Q4

REPORT INFORMATION
  Report Type: 
  Country: None (occurrence: None)
  Receive Date: 20081126
  Receipt Date: 20080606
  Transmission Date: 20090506
  Serious: Yes (Other)
  Sender: FDA-Public Use
  Company Number: 2008BH005955

PATIENT
  Age: 55 Year
  Sex: Female
  Weight: 55 kg

DRUGS (9)
  1. DIANEAL [Suspect]
     Indication: PERITONEAL DIALYSIS
     Dosage: 9 L;EVERY DAY ;IP
     Route: 033
     Dates: start: 20070901
  2. HEPARIN [Concomitant]
  3. ASPIRIN [Concomitant]
  4. CADUET [Concomitant]
  5. CLONIDINE [Concomitant]
  6. LABETALOL HCL [Concomitant]
  7. PEPCID [Concomitant]
  8. XANAX [Concomitant]
  9. ZEMPLAR [Concomitant]

REACTIONS (3)
  - CONSTIPATION [None]
  - PERITONEAL DIALYSIS COMPLICATION [None]
  - PERITONITIS BACTERIAL [None]
